FAERS Safety Report 5997193-1 (Version None)
Quarter: 2008Q4

REPORT INFORMATION
  Report Type: 
  Country: None (occurrence: None)
  Receive Date: 20081212
  Receipt Date: 20081105
  Transmission Date: 20090506
  Serious: No
  Sender: FDA-Public Use
  Company Number: US-ABBOTT-08P-163-0485804-00

PATIENT
  Sex: Female

DRUGS (2)
  1. HUMIRA [Suspect]
     Indication: CROHN'S DISEASE
     Dates: start: 20080903
  2. HUMIRA [Suspect]
     Indication: PSORIASIS

REACTIONS (6)
  - COUGH [None]
  - NASOPHARYNGITIS [None]
  - PYREXIA [None]
  - RASH [None]
  - RASH MACULAR [None]
  - RESPIRATORY TRACT CONGESTION [None]
